FAERS Safety Report 7214375-1 (Version None)
Quarter: 2010Q4

REPORT INFORMATION
  Report Type: 
  Country: None (occurrence: None)
  Receive Date: 20101126
  Receipt Date: 20100616
  Transmission Date: 20110411
  Serious: Yes (Other)
  Sender: FDA-Public Use
  Company Number: WAES 1006USA02773

PATIENT
  Age: 79 Year
  Sex: Female

DRUGS (1)
  1. FOSAMAX [Suspect]
     Indication: OSTEOARTHRITIS
     Dosage: PO
     Route: 048
     Dates: end: 20081001

REACTIONS (10)
  - ARTHRALGIA [None]
  - BACK PAIN [None]
  - FALL [None]
  - FEMUR FRACTURE [None]
  - INTERVERTEBRAL DISC DEGENERATION [None]
  - LUMBAR RADICULOPATHY [None]
  - MEDICAL DEVICE PAIN [None]
  - OSTEOARTHRITIS [None]
  - SCOLIOSIS [None]
  - TENDONITIS [None]
